FAERS Safety Report 10066543 (Version 1)
Quarter: 2014Q2

REPORT INFORMATION
  Report Type: Spontaneous
  Country: US (occurrence: US)
  Receive Date: 20140408
  Receipt Date: 20140408
  Transmission Date: 20141212
  Serious: Yes (Hospitalization, Other)
  Sender: FDA-Public Use
  Company Number: US-BAXTER-2014BAX016539

PATIENT
  Age: 44 Year
  Sex: Female

DRUGS (2)
  1. GAMMAGARD LIQUID [Suspect]
     Indication: IMMUNODEFICIENCY COMMON VARIABLE
     Route: 042
  2. GAMMAGARD LIQUID [Suspect]
     Route: 042
     Dates: start: 20140212, end: 20140212

REACTIONS (4)
  - Meningitis chemical [Not Recovered/Not Resolved]
  - Vision blurred [Unknown]
  - Amnesia [Unknown]
  - Dyspnoea [Unknown]
